FAERS Safety Report 7770904-0 (Version None)
Quarter: 2011Q3

REPORT INFORMATION
  Report Type: 
  Country: None (occurrence: None)
  Receive Date: 20110922
  Receipt Date: 20100803
  Transmission Date: 20111222
  Serious: Yes (Other)
  Sender: FDA-Public Use
  Company Number: US-ASTRAZENECA-2007UW25129

PATIENT
  Age: 15699 Day
  Sex: Male
  Weight: 99.3 kg

DRUGS (19)
  1. SEROQUEL [Suspect]
     Indication: DEPRESSION
     Dosage: 200 MG - 2400 MG
     Route: 048
     Dates: start: 20050328
  2. SEROQUEL [Suspect]
     Dosage: 200-1000 MG
     Route: 048
     Dates: start: 20050606, end: 20070702
  3. HALDOL [Concomitant]
     Dates: start: 20050727
  4. ZYPREXA [Concomitant]
     Dates: start: 20051025
  5. THORAZINE [Concomitant]
  6. SEROQUEL [Suspect]
     Dosage: 200-1000 MG
     Route: 048
     Dates: start: 20050606, end: 20070702
  7. DEPAKOTE [Concomitant]
     Dosage: 500 MG - 1500 MG
     Dates: start: 20050727
  8. SEROQUEL [Suspect]
     Indication: SCHIZOAFFECTIVE DISORDER
     Dosage: 200 MG - 2400 MG
     Route: 048
     Dates: start: 20050328
  9. SEROQUEL [Suspect]
     Dosage: 200 TO 1000 MG
     Route: 048
     Dates: start: 20050526, end: 20070106
  10. SEROQUEL [Suspect]
     Dosage: 200 TO 1000 MG
     Route: 048
     Dates: start: 20050526, end: 20070106
  11. PAXIL [Concomitant]
     Dates: start: 20050713
  12. CYMBALTA [Concomitant]
     Dosage: 30 MG - 60 MG DAILY
     Dates: start: 20060828
  13. CLONIDINE [Concomitant]
     Indication: SLEEP DISORDER
  14. SEROQUEL [Suspect]
     Dosage: 200-1000 MG
     Route: 048
     Dates: start: 20050606, end: 20070702
  15. SEROQUEL [Suspect]
     Indication: BIPOLAR DISORDER
     Dosage: 200 MG - 2400 MG
     Route: 048
     Dates: start: 20050328
  16. SEROQUEL [Suspect]
     Dosage: 200 TO 1000 MG
     Route: 048
     Dates: start: 20050526, end: 20070106
  17. SEROQUEL [Suspect]
     Dosage: 200-1000 MG
     Route: 048
     Dates: start: 20050606, end: 20070702
  18. SEROQUEL [Suspect]
     Indication: SCHIZOPHRENIA
     Dosage: 200 MG - 2400 MG
     Route: 048
     Dates: start: 20050328
  19. SEROQUEL [Suspect]
     Dosage: 200 TO 1000 MG
     Route: 048
     Dates: start: 20050526, end: 20070106

REACTIONS (9)
  - DIABETIC COMPLICATION [None]
  - DIABETIC KETOACIDOSIS [None]
  - BLOOD TRIGLYCERIDES INCREASED [None]
  - TYPE 2 DIABETES MELLITUS [None]
  - DIABETIC COMA [None]
  - BLOOD CHOLESTEROL INCREASED [None]
  - HYPERLIPIDAEMIA [None]
  - ADVERSE DRUG REACTION [None]
  - SPINAL DISORDER [None]
